FAERS Safety Report 23443099 (Version 1)
Quarter: 2024Q1

REPORT INFORMATION
  Report Type: Spontaneous
  Country: IT (occurrence: None)
  Receive Date: 20240125
  Receipt Date: 20240125
  Transmission Date: 20240410
  Serious: Yes (Hospitalization, Other)
  Sender: FDA-Public Use
  Company Number: 2024A014231

PATIENT
  Age: 28 Year
  Sex: Female

DRUGS (2)
  1. BUDESONIDE\FORMOTEROL [Suspect]
     Active Substance: BUDESONIDE\FORMOTEROL
     Indication: Asthma
     Dosage: BUDESONIDE 160 UG/FORMOTEROL 4.5 UG AS NEEDED AS REQUIRED
     Route: 055
  2. BUDESONIDE\FORMOTEROL [Suspect]
     Active Substance: BUDESONIDE\FORMOTEROL
     Indication: Asthma
     Dosage: BUDESONIDE 320 UG/FORMOTEROL 9 UG AS NEEDED AS REQUIRED
     Route: 055

REACTIONS (2)
  - Drug ineffective [Unknown]
  - Asthma [Unknown]
